FAERS Safety Report 8857800 (Version 1)
Quarter: 2012Q4

REPORT INFORMATION
  Report Type: Report from Study
  Country: GB (occurrence: GB)
  Receive Date: 20121024
  Receipt Date: 20121024
  Transmission Date: 20130627
  Serious: Yes (Other)
  Sender: FDA-Public Use
  Company Number: GB-GILEAD-2012-0063410

PATIENT
  Age: 40 Year
  Sex: Female

DRUGS (3)
  1. EMTRICITABINE/TENOFOVIR DISOPROXIL FUMARATE [Suspect]
     Indication: HIV INFECTION
     Dosage: 1 DF, QD
     Route: 048
  2. REYATAZ [Concomitant]
     Dosage: 300 mg, QD
     Route: 048
  3. NORVIR [Concomitant]
     Dosage: 100 mg, QD
     Route: 048

REACTIONS (1)
  - Abortion spontaneous [Unknown]
